FAERS Safety Report 8503666-X (Version None)
Quarter: 2012Q3

REPORT INFORMATION
  Report Type: 
  Country: None (occurrence: None)
  Receive Date: 20120711
  Receipt Date: 20120703
  Transmission Date: 20120928
  Serious: Yes (Hospitalization)
  Sender: FDA-Public Use
  Company Number: US-GILEAD-2012-0057217

PATIENT
  Sex: Female

DRUGS (1)
  1. LETAIRIS [Suspect]
     Indication: PRODUCT USED FOR UNKNOWN INDICATION
     Dosage: 5 MG, UNK
     Route: 048
     Dates: start: 20120601

REACTIONS (6)
  - EYE DISCHARGE [None]
  - FACE OEDEMA [None]
  - OCULAR ICTERUS [None]
  - FLUID RETENTION [None]
  - PNEUMONIA [None]
  - VISION BLURRED [None]
